FAERS Safety Report 4318450-0 (Version None)
Quarter: 2004Q1

REPORT INFORMATION
  Report Type: 
  Country: None (occurrence: None)
  Receive Date: 20040315
  Receipt Date: 20040304
  Transmission Date: 20041129
  Serious: Yes (Other)
  Sender: FDA-Public Use
  Company Number: DE-JNJFOC-20040301201

PATIENT
  Age: 74 Year
  Sex: Female

DRUGS (8)
  1. REMICADE [Suspect]
     Indication: RHEUMATOID ARTHRITIS
     Dosage: 200 MG, INTRAVENOUS
     Route: 042
     Dates: start: 20030320
  2. METHOTREXATE [Concomitant]
  3. FOLIC ACID [Concomitant]
  4. PREDNISONE [Concomitant]
  5. CALCIUM CARBONATE    (CALCIUM CARBONATE) [Concomitant]
  6. DICLOFENAC SODIUM [Concomitant]
  7. VOLTAREN [Concomitant]
  8. OMEPRAZOLE [Concomitant]

REACTIONS (1)
  - KNEE ARTHROPLASTY [None]
